FAERS Safety Report 6887084-6 (Version None)
Quarter: 2010Q3

REPORT INFORMATION
  Report Type: 
  Country: None (occurrence: None)
  Receive Date: 20100708
  Receipt Date: 20100225
  Transmission Date: 20110219
  Serious: Yes (Other)
  Sender: FDA-Public Use
  Company Number: 2010025004

PATIENT
  Age: 63 Year
  Sex: Female
  Weight: 84.4 kg

DRUGS (4)
  1. CHANTIX [Suspect]
     Dosage: 0.5 MG, 1X/DAY, ORAL
     Route: 048
     Dates: start: 20070101, end: 20080101
  2. NORVASC [Concomitant]
  3. BENAZEPRIL HYDROCHLORIDE [Concomitant]
  4. HYDROCORTONE [Concomitant]

REACTIONS (4)
  - ABNORMAL DREAMS [None]
  - HEAD DISCOMFORT [None]
  - MOOD SWINGS [None]
  - TREMOR [None]
